FAERS Safety Report 24401514 (Version 2)
Quarter: 2024Q4

REPORT INFORMATION
  Report Type: Spontaneous
  Country: US (occurrence: US)
  Receive Date: 20241007
  Receipt Date: 20241122
  Transmission Date: 20250115
  Serious: No
  Sender: Kenvue
  Company Number: US-JNJFOC-20240951639

PATIENT
  Age: 61 Year
  Sex: Female

DRUGS (1)
  1. MENS ROGAINE EXTRA STRENGTH [Suspect]
     Active Substance: MINOXIDIL
     Indication: Alopecia
     Dosage: HALF FULL CAP TWICE A DAY. MORNING AND NIGHT
     Route: 065
     Dates: start: 20240727

REACTIONS (3)
  - Off label use [Unknown]
  - Product physical issue [Unknown]
  - Overdose [Unknown]

NARRATIVE: CASE EVENT DATE: 20240727
